FAERS Safety Report 23831768 (Version 3)
Quarter: 2024Q2

REPORT INFORMATION
  Report Type: Report from Study
  Country: BR (occurrence: BR)
  Receive Date: 20240508
  Receipt Date: 20240524
  Transmission Date: 20240716
  Serious: Yes (Other)
  Sender: FDA-Public Use
  Company Number: BR-JNJFOC-20240507166

PATIENT
  Age: 16 Year
  Sex: Female
  Weight: 77 kg

DRUGS (3)
  1. INFLIXIMAB [Suspect]
     Active Substance: INFLIXIMAB
     Indication: Colitis ulcerative
     Dosage: 3 AMPOULES
     Route: 041
  2. REMICADE [Suspect]
     Active Substance: INFLIXIMAB
     Indication: Colitis ulcerative
     Dosage: 3 AMPOULES
     Route: 041
     Dates: start: 20230706
  3. REMICADE [Suspect]
     Active Substance: INFLIXIMAB
     Dosage: 3 AMPOULES?LAST INFUSION ON 23-APR-2024
     Route: 041
     Dates: start: 20230727

REACTIONS (9)
  - Gastrointestinal inflammation [Unknown]
  - Anaphylactic reaction [Unknown]
  - Infusion related reaction [Unknown]
  - Erythema [Unknown]
  - Hypoaesthesia [Unknown]
  - Drug ineffective [Unknown]
  - Eye pruritus [Recovering/Resolving]
  - Eye swelling [Recovering/Resolving]
  - Skin plaque [Recovering/Resolving]

NARRATIVE: CASE EVENT DATE: 20240403
